FAERS Safety Report 9252209 (Version 2)
Quarter: 2013Q2

REPORT INFORMATION
  Report Type: Spontaneous
  Country: CA (occurrence: CA)
  Receive Date: 20130424
  Receipt Date: 20130430
  Transmission Date: 20140414
  Serious: Yes (Life-Threatening, Hospitalization)
  Sender: FDA-Public Use
  Company Number: CA-ALEXION-A201300867

PATIENT
  Age: 24 Year
  Sex: Male
  Weight: 95.2 kg

DRUGS (19)
  1. SOLIRIS 300MG [Suspect]
     Indication: PAROXYSMAL NOCTURNAL HAEMOGLOBINURIA
     Dosage: 600 MG, QW
     Route: 042
     Dates: start: 20130408
  2. FLUCONAZOLE [Concomitant]
     Indication: PROPHYLAXIS
     Dosage: 400 MG, QD
     Route: 042
     Dates: start: 20130408, end: 20130411
  3. TAZOCIN [Concomitant]
     Indication: PROPHYLAXIS
     Dosage: 4.5 G, QID
     Route: 042
     Dates: start: 20130408, end: 20130411
  4. CEFEPIME [Concomitant]
  5. DAPTOMYCIN [Concomitant]
     Indication: INFECTION
     Dosage: 100 MG, QD
     Route: 042
     Dates: start: 20130403, end: 20130416
  6. VORICONAZOLE [Concomitant]
     Indication: ANTIFUNGAL TREATMENT
     Dosage: 580 MG, BID
     Dates: start: 20130415, end: 20130416
  7. VORICONAZOLE [Concomitant]
     Dosage: 380 MG, BID
     Route: 042
     Dates: start: 20130416
  8. PARENTERAL [Concomitant]
     Indication: NUTRITIONAL SUPPLEMENTATION
     Dosage: 1079 ML
     Route: 042
     Dates: start: 20130406, end: 20130414
  9. MEROPENEM [Concomitant]
     Dosage: 1000 MG, TID
     Route: 042
     Dates: start: 20130416
  10. HYDROMORPHONE [Concomitant]
     Indication: PAIN
     Dosage: 2 MG, PRN
     Route: 058
     Dates: start: 20130402
  11. HYDROMORPHONE [Concomitant]
     Dosage: 2 MG, PRN
     Route: 048
     Dates: start: 20130408
  12. ACETAMINOPHEN [Concomitant]
     Indication: PROPHYLAXIS
     Dosage: 650 MG, SINGLE
     Route: 048
     Dates: start: 20130410, end: 20130410
  13. ACETAMINOPHEN [Concomitant]
     Indication: ANALGESIC THERAPY
  14. ACETAMINOPHEN [Concomitant]
     Indication: PROPHYLAXIS
  15. BENADRYL [Concomitant]
     Indication: PROPHYLAXIS
     Dosage: 50 MG
     Route: 042
     Dates: start: 20130403
  16. ATIVAN [Concomitant]
     Indication: SEDATIVE THERAPY
     Dosage: 1 MG, QD
     Route: 048
     Dates: start: 20130402
  17. GRAVOL [Concomitant]
     Indication: PROPHYLAXIS
     Dosage: 50 MG
     Route: 042
     Dates: start: 20130402
  18. SOLUCORTEF [Concomitant]
     Indication: PROPHYLAXIS
     Dosage: 50 MG
     Route: 042
     Dates: start: 20130403
  19. INSULIN [Concomitant]
     Dosage: QID, SLIDING SCALE
     Route: 058
     Dates: start: 20130313

REACTIONS (2)
  - Septic shock [Recovered/Resolved]
  - Pyrexia [Recovered/Resolved]
